FAERS Safety Report 18776262 (Version 1)
Quarter: 2021Q1

REPORT INFORMATION
  Report Type: Spontaneous
  Country: IT (occurrence: IT)
  Receive Date: 20210122
  Receipt Date: 20210122
  Transmission Date: 20210419
  Serious: Yes (Other)
  Sender: FDA-Public Use
  Company Number: NVSC2020IT345645

PATIENT
  Age: 69 Year
  Sex: Male
  Weight: 95 kg

DRUGS (1)
  1. HYRIMOZ [Suspect]
     Active Substance: ADALIMUMAB-ADAZ
     Indication: PSORIASIS
     Dosage: 40 MG, CYCLIC
     Route: 058
     Dates: start: 20200118, end: 20200615

REACTIONS (1)
  - Adenocarcinoma [Unknown]
